FAERS Safety Report 14088476 (Version 9)
Quarter: 2018Q1

REPORT INFORMATION
  Report Type: Spontaneous
  Country: US (occurrence: US)
  Receive Date: 20171013
  Receipt Date: 20180215
  Transmission Date: 20180508
  Serious: Yes (Hospitalization, Other)
  Sender: FDA-Public Use
  Company Number: US-ACTELION-A-NJ2017-160912

PATIENT
  Age: 32 Year
  Sex: Male

DRUGS (12)
  1. UPTRAVI [Suspect]
     Active Substance: SELEXIPAG
     Dosage: 600 MCG, BID
     Route: 048
     Dates: start: 20171002
  2. ADCIRCA [Concomitant]
     Active Substance: TADALAFIL
  3. UPTRAVI [Suspect]
     Active Substance: SELEXIPAG
     Dosage: 800 MCG, UNK
     Route: 048
  4. VENTAVIS [Concomitant]
     Active Substance: ILOPROST
     Indication: PULMONARY ARTERIAL HYPERTENSION
  5. NIFEDIPINE. [Concomitant]
     Active Substance: NIFEDIPINE
  6. WARFARIN [Concomitant]
     Active Substance: WARFARIN
  7. SILDENAFIL. [Concomitant]
     Active Substance: SILDENAFIL
  8. AMBRISENTAN [Suspect]
     Active Substance: AMBRISENTAN
     Indication: PRODUCT USED FOR UNKNOWN INDICATION
     Dosage: 10 MG, QD
     Route: 065
     Dates: start: 20170614
  9. UPTRAVI [Suspect]
     Active Substance: SELEXIPAG
     Dosage: 1200 MCG, UNK
     Route: 048
  10. TYVASO [Concomitant]
     Active Substance: TREPROSTINIL
  11. UPTRAVI [Suspect]
     Active Substance: SELEXIPAG
     Indication: PRODUCT USED FOR UNKNOWN INDICATION
     Dosage: UNK
     Route: 048
  12. UPTRAVI [Suspect]
     Active Substance: SELEXIPAG
     Dosage: 1000 MCG, BID
     Route: 048
     Dates: start: 20171112

REACTIONS (9)
  - Mechanical ventilation [Not Recovered/Not Resolved]
  - Abdominal pain upper [Not Recovered/Not Resolved]
  - Irritable bowel syndrome [Not Recovered/Not Resolved]
  - Pneumonia [Not Recovered/Not Resolved]
  - Flushing [Not Recovered/Not Resolved]
  - Diarrhoea [Not Recovered/Not Resolved]
  - Gastric disorder [Not Recovered/Not Resolved]
  - Intestinal obstruction [Unknown]
  - Headache [Not Recovered/Not Resolved]

NARRATIVE: CASE EVENT DATE: 2017
